FAERS Safety Report 11693603 (Version 5)
Quarter: 2016Q1

REPORT INFORMATION
  Report Type: Spontaneous
  Country: US (occurrence: US)
  Receive Date: 20151103
  Receipt Date: 20160331
  Transmission Date: 20160525
  Serious: No
  Sender: FDA-Public Use
  Company Number: US-PFIZER INC-2015373114

PATIENT
  Age: 53 Year
  Sex: Female

DRUGS (1)
  1. XELJANZ [Suspect]
     Active Substance: TOFACITINIB CITRATE
     Indication: RHEUMATOID ARTHRITIS
     Dosage: 5 MG, 2X/DAY
     Route: 048
     Dates: start: 20141124

REACTIONS (6)
  - Constipation [Unknown]
  - Eye swelling [Unknown]
  - Eye pain [Unknown]
  - Pain [Recovering/Resolving]
  - Cough [Unknown]
  - Eye inflammation [Unknown]

NARRATIVE: CASE EVENT DATE: 201508
